FAERS Safety Report 23899073 (Version 2)
Quarter: 2024Q2

REPORT INFORMATION
  Report Type: Spontaneous
  Country: HR (occurrence: HR)
  Receive Date: 20240526
  Receipt Date: 20240611
  Transmission Date: 20240715
  Serious: Yes (Other)
  Sender: FDA-Public Use
  Company Number: HR-002147023-NVSC2021HR042645

PATIENT
  Age: 56 Year
  Sex: Female

DRUGS (45)
  1. DICLOFENAC [Suspect]
     Active Substance: DICLOFENAC
     Indication: Product used for unknown indication
     Dosage: UNK
     Route: 065
  2. DICLOFENAC [Suspect]
     Active Substance: DICLOFENAC
     Dosage: UNK
     Route: 065
  3. DICLOFENAC [Suspect]
     Active Substance: DICLOFENAC
     Dosage: UNK
     Route: 065
  4. ACITRETIN [Suspect]
     Active Substance: ACITRETIN
     Indication: Pustular psoriasis
     Dosage: UNK
     Route: 065
  5. ACITRETIN [Suspect]
     Active Substance: ACITRETIN
     Dosage: UNK
     Route: 065
  6. ACITRETIN [Suspect]
     Active Substance: ACITRETIN
     Dosage: UNK
     Route: 065
  7. ACITRETIN [Suspect]
     Active Substance: ACITRETIN
     Dosage: UNK
     Route: 065
  8. ACITRETIN [Suspect]
     Active Substance: ACITRETIN
     Dosage: UNK
     Route: 065
  9. ACITRETIN [Suspect]
     Active Substance: ACITRETIN
     Dosage: UNK
     Route: 065
  10. ACITRETIN [Suspect]
     Active Substance: ACITRETIN
     Dosage: UNK
     Route: 065
  11. COSENTYX [Suspect]
     Active Substance: SECUKINUMAB
     Indication: Pustular psoriasis
     Dosage: UNK
     Route: 065
  12. COSENTYX [Suspect]
     Active Substance: SECUKINUMAB
     Dosage: UNK
     Route: 065
  13. COSENTYX [Suspect]
     Active Substance: SECUKINUMAB
     Dosage: UNK
     Route: 065
  14. BILASTINE [Suspect]
     Active Substance: BILASTINE
     Indication: Product used for unknown indication
     Dosage: UNK
     Route: 065
  15. BILASTINE [Suspect]
     Active Substance: BILASTINE
     Dosage: UNK
     Route: 048
  16. BILASTINE [Suspect]
     Active Substance: BILASTINE
     Dosage: UNK
     Route: 065
  17. BILASTINE [Suspect]
     Active Substance: BILASTINE
     Dosage: UNK
     Route: 065
  18. DESLORATADINE [Suspect]
     Active Substance: DESLORATADINE
     Indication: Product used for unknown indication
     Dosage: UNK
     Route: 065
  19. APREMILAST [Suspect]
     Active Substance: APREMILAST
     Indication: Pustular psoriasis
     Dosage: UNK
     Route: 065
  20. APREMILAST [Suspect]
     Active Substance: APREMILAST
     Dosage: UNK
     Route: 065
  21. APREMILAST [Suspect]
     Active Substance: APREMILAST
     Dosage: UNK
     Route: 065
  22. ADALIMUMAB [Suspect]
     Active Substance: ADALIMUMAB\ISOPROPYL ALCOHOL
     Indication: Pustular psoriasis
     Dosage: UNK
     Route: 065
  23. ADALIMUMAB [Suspect]
     Active Substance: ADALIMUMAB\ISOPROPYL ALCOHOL
     Dosage: UNK
     Route: 065
  24. ADALIMUMAB [Suspect]
     Active Substance: ADALIMUMAB\ISOPROPYL ALCOHOL
     Dosage: UNK
     Route: 065
  25. LORATADINE [Suspect]
     Active Substance: LORATADINE
     Indication: Product used for unknown indication
     Dosage: UNK
     Route: 065
  26. LORATADINE [Suspect]
     Active Substance: LORATADINE
     Dosage: UNK
     Route: 065
  27. LORATADINE [Suspect]
     Active Substance: LORATADINE
     Dosage: UNK
     Route: 065
  28. RISANKIZUMAB [Suspect]
     Active Substance: RISANKIZUMAB
     Indication: Pustular psoriasis
     Dosage: UNK (UNK, Q3MO)
     Dates: start: 201912
  29. RISANKIZUMAB [Suspect]
     Active Substance: RISANKIZUMAB
     Dosage: UNK (UNK, Q3MO)
     Dates: start: 201912
  30. METHYLPREDNISOLONE [Suspect]
     Active Substance: METHYLPREDNISOLONE
     Indication: Pustular psoriasis
     Dosage: 8 MG, QD
     Route: 065
     Dates: start: 202008
  31. PIOGLITAZONE [Suspect]
     Active Substance: PIOGLITAZONE
     Indication: Product used for unknown indication
     Dosage: UNK
     Route: 065
  32. PIOGLITAZONE [Suspect]
     Active Substance: PIOGLITAZONE
     Dosage: UNK
     Route: 065
  33. PIOGLITAZONE [Suspect]
     Active Substance: PIOGLITAZONE
     Dosage: UNK
     Route: 065
  34. KETOPROFEN [Suspect]
     Active Substance: KETOPROFEN
     Indication: Product used for unknown indication
     Dosage: UNK
     Route: 016
  35. KETOPROFEN [Suspect]
     Active Substance: KETOPROFEN
     Dosage: UNK
     Route: 016
  36. KETOPROFEN [Suspect]
     Active Substance: KETOPROFEN
     Dosage: UNK
     Route: 016
  37. METHOTREXATE [Suspect]
     Active Substance: METHOTREXATE
     Indication: Pustular psoriasis
     Dosage: 15 MG
     Dates: start: 202005
  38. PANTOPRAZOLE [Suspect]
     Active Substance: PANTOPRAZOLE
     Indication: Product used for unknown indication
     Dosage: 40 MG,QD (20 MG, BID)
     Route: 065
  39. PANTOPRAZOLE [Suspect]
     Active Substance: PANTOPRAZOLE
     Dosage: 40 MG,QD (20 MG, BID)
     Route: 065
  40. PANTOPRAZOLE [Suspect]
     Active Substance: PANTOPRAZOLE
     Dosage: (20 MG, BID)
     Route: 065
  41. IBUPROFEN [Suspect]
     Active Substance: IBUPROFEN
     Indication: Product used for unknown indication
     Route: 065
  42. IBUPROFEN [Suspect]
     Active Substance: IBUPROFEN
     Route: 065
  43. IBUPROFEN [Suspect]
     Active Substance: IBUPROFEN
     Route: 065
  44. CETIRIZINE [Suspect]
     Active Substance: CETIRIZINE HYDROCHLORIDE
     Indication: Product used for unknown indication
     Dosage: 10 MG (10 MG 1+1+2 TBL)
     Route: 065
  45. CETIRIZINE [Suspect]
     Active Substance: CETIRIZINE HYDROCHLORIDE
     Dosage: 10 MG (10 MG 1+1+2 TBL)
     Route: 065

REACTIONS (12)
  - Inflammatory bowel disease [Recovered/Resolved]
  - Myalgia [Unknown]
  - Urticaria [Unknown]
  - Erythema [Recovering/Resolving]
  - Asthenia [Unknown]
  - Weight decreased [Recovering/Resolving]
  - Face oedema [Unknown]
  - Product use in unapproved indication [Unknown]
  - Arthralgia [Unknown]
  - Diarrhoea [Recovered/Resolved]
  - Drug ineffective [Unknown]
  - Fatigue [Unknown]

NARRATIVE: CASE EVENT DATE: 20191101
